FAERS Safety Report 6655249-4 (Version None)
Quarter: 2010Q1

REPORT INFORMATION
  Report Type: 
  Country: None (occurrence: None)
  Receive Date: 20100329
  Receipt Date: 20100316
  Transmission Date: 20100710
  Serious: Yes (Hospitalization)
  Sender: FDA-Public Use
  Company Number: US-ELI_LILLY_AND_COMPANY-US201003006480

PATIENT
  Sex: Female

DRUGS (4)
  1. FORTEO [Suspect]
     Indication: OSTEOPOROSIS
     Dosage: 20 UG, DAILY (1/D)
     Dates: start: 20091211
  2. ADVAIR DISKUS 100/50 [Concomitant]
     Indication: ASTHMA
  3. PREDNISONE TAB [Concomitant]
     Dosage: 7 MG, UNKNOWN
  4. CORTISONE ACETATE [Concomitant]

REACTIONS (4)
  - HEADACHE [None]
  - INTERVERTEBRAL DISC PROTRUSION [None]
  - SPONDYLITIS [None]
  - SPONDYLOLISTHESIS [None]
